FAERS Safety Report 24971652 (Version 3)
Quarter: 2025Q1

REPORT INFORMATION
  Report Type: Report from Study
  Country: FR (occurrence: FR)
  Receive Date: 20250214
  Receipt Date: 20250225
  Transmission Date: 20250409
  Serious: Yes (Death, Hospitalization)
  Sender: DAIICHI
  Company Number: FR-DSJP-DS-2025-123933-FR

PATIENT
  Age: 76 Year
  Sex: Female

DRUGS (8)
  1. ENHERTU [Suspect]
     Active Substance: FAM-TRASTUZUMAB DERUXTECAN-NXKI
     Indication: HER2 low breast cancer
     Route: 042
     Dates: start: 20250122, end: 20250122
  2. ENHERTU [Suspect]
     Active Substance: FAM-TRASTUZUMAB DERUXTECAN-NXKI
     Indication: Breast cancer metastatic
  3. APREPITANT [Concomitant]
     Active Substance: APREPITANT
     Indication: Nausea
     Dosage: 125 MG DAILY
     Route: 048
     Dates: start: 20250122, end: 20250122
  4. APREPITANT [Concomitant]
     Active Substance: APREPITANT
     Indication: Vomiting
     Dosage: 125 MG DAILY
     Route: 048
     Dates: start: 20250123, end: 20250124
  5. CHOLECALCIFEROL [Concomitant]
     Active Substance: CHOLECALCIFEROL
     Indication: Osteoporosis
     Route: 048
     Dates: start: 20250122
  6. DENOSUMAB [Concomitant]
     Active Substance: DENOSUMAB
     Indication: Bone resorption test
     Route: 050
     Dates: start: 20250122
  7. FENTANYL [Concomitant]
     Active Substance: FENTANYL
     Indication: Pain
     Route: 062
     Dates: start: 20250122
  8. FENTANYL [Concomitant]
     Active Substance: FENTANYL
     Route: 062
     Dates: start: 20250122

REACTIONS (3)
  - Malnutrition [Fatal]
  - Decreased appetite [Fatal]
  - Fatigue [Unknown]

NARRATIVE: CASE EVENT DATE: 20250205
